FAERS Safety Report 7550957-5 (Version None)
Quarter: 2011Q2

REPORT INFORMATION
  Report Type: 
  Country: None (occurrence: None)
  Receive Date: 20110616
  Receipt Date: 20110606
  Transmission Date: 20111010
  Serious: Yes (Death)
  Sender: FDA-Public Use
  Company Number: BR-GENZYME-CLOF-1001629

PATIENT
  Sex: Male

DRUGS (1)
  1. CLOLAR [Suspect]
     Indication: ACUTE LYMPHOCYTIC LEUKAEMIA
     Dosage: UNK
     Route: 065
     Dates: start: 20110501, end: 20110501

REACTIONS (2)
  - HAEMORRHAGIC STROKE [None]
  - ACUTE LYMPHOCYTIC LEUKAEMIA [None]
